FAERS Safety Report 6376228-0 (Version None)
Quarter: 2009Q3

REPORT INFORMATION
  Report Type: 
  Country: None (occurrence: None)
  Receive Date: 20090925
  Receipt Date: 20071213
  Transmission Date: 20100115
  Serious: Yes (Other)
  Sender: FDA-Public Use
  Company Number: US-ASTRAZENECA-2006UW26275

PATIENT
  Age: 46 Year
  Sex: Male

DRUGS (9)
  1. SEROQUEL [Suspect]
     Indication: PSYCHOTIC DISORDER
     Dosage: 100 - 400 MG
     Route: 048
     Dates: start: 19990101
  2. SEROQUEL [Suspect]
     Route: 048
     Dates: start: 20010618
  3. RISPERDAL [Concomitant]
  4. TEMAZEPAM [Concomitant]
     Dates: start: 20010406
  5. NEURONTIN [Concomitant]
     Dates: start: 20010406
  6. WELLBUTRIN SR [Concomitant]
     Dates: start: 20010605
  7. TRAZODONE HCL [Concomitant]
     Dates: start: 20010605
  8. HYDROCODONE BITARTRATE AND ACETAMINOPHEN [Concomitant]
     Dosage: STRENGTH - 5 / 500 MG - 7.5 - 750 MG
     Dates: start: 20010620
  9. AMOXICILLIN [Concomitant]
     Dates: start: 20010621

REACTIONS (6)
  - ALCOHOL POISONING [None]
  - DIABETES MELLITUS [None]
  - DIABETIC NEUROPATHY [None]
  - GLUCOSE TOLERANCE IMPAIRED [None]
  - TYPE 2 DIABETES MELLITUS [None]
  - VISION BLURRED [None]
